FAERS Safety Report 4647203-9 (Version None)
Quarter: 2005Q2

REPORT INFORMATION
  Report Type: 
  Country: None (occurrence: None)
  Receive Date: 20050426
  Receipt Date: 20050426
  Transmission Date: 20051028
  Serious: Yes (Other)
  Sender: FDA-Public Use
  Company Number: None

PATIENT
  Age: 49 Year
  Sex: Male

DRUGS (9)
  1. ACTONEL [Suspect]
     Indication: OSTEOPOROSIS
     Dosage: 35 MG WEEKLY ORAL
     Route: 048
     Dates: start: 20031123, end: 20050420
  2. CARNITINE [Concomitant]
  3. CALCIUM GLUCONATE [Concomitant]
  4. DEPAKOTE ER [Concomitant]
  5. ASPIRIN [Concomitant]
  6. MULTI-VITAMIN [Concomitant]
  7. LIPITOR [Concomitant]
  8. DILANTIN [Concomitant]
  9. CLARITIN [Concomitant]

REACTIONS (2)
  - GASTRITIS [None]
  - OESOPHAGITIS [None]
